FAERS Safety Report 4503543-5 (Version None)
Quarter: 2004Q4

REPORT INFORMATION
  Report Type: 
  Country: None (occurrence: None)
  Receive Date: 20041112
  Receipt Date: 20041029
  Transmission Date: 20050328
  Serious: Yes (Other)
  Sender: FDA-Public Use
  Company Number: K200401695

PATIENT
  Sex: Male

DRUGS (1)
  1. FLORINEF [Suspect]
     Dosage: 100 UG,

REACTIONS (2)
  - DIPLOPIA [None]
  - HALLUCINATION [None]
